FAERS Safety Report 5003794-X (Version None)
Quarter: 2006Q2

REPORT INFORMATION
  Report Type: 
  Country: None (occurrence: None)
  Receive Date: 20060516
  Receipt Date: 20050412
  Transmission Date: 20061013
  Serious: Yes (Hospitalization)
  Sender: FDA-Public Use
  Company Number: US-MERCK-0504USA02098

PATIENT
  Age: 36 Year
  Sex: Male
  Weight: 109 kg

DRUGS (1)
  1. VIOXX [Suspect]
     Indication: ARTHRITIS
     Route: 048
     Dates: start: 20000101, end: 20020527

REACTIONS (5)
  - BACK PAIN [None]
  - BILIARY COLIC [None]
  - BRONCHITIS [None]
  - CHEST PAIN [None]
  - MYOCARDIAL INFARCTION [None]
